FAERS Safety Report 19362165 (Version 1)
Quarter: 2021Q2

REPORT INFORMATION
  Report Type: Report from Study
  Country: KR (occurrence: KR)
  Receive Date: 20210603
  Receipt Date: 20210603
  Transmission Date: 20210717
  Serious: Yes (Other)
  Sender: FDA-Public Use
  Company Number: KR-AMGEN-KORCT2021084119

PATIENT
  Age: 55 Year
  Sex: Male

DRUGS (1)
  1. FILGRASTIM [Suspect]
     Active Substance: FILGRASTIM
     Indication: PRODUCT USED FOR UNKNOWN INDICATION
     Dosage: 450 MILLIGRAM
     Route: 065
     Dates: start: 20110313, end: 20110315

REACTIONS (29)
  - Aspergillus infection [Not Recovered/Not Resolved]
  - Agitation [Recovered/Resolved]
  - Cough [Recovered/Resolved]
  - Pleuritic pain [Recovered/Resolved]
  - Neutropenia [Recovered/Resolved]
  - Hypotension [Recovered/Resolved]
  - Constipation [Recovered/Resolved]
  - Arthralgia [Recovered/Resolved]
  - Hyperglycaemia [Recovered/Resolved]
  - Purpura [Recovered/Resolved]
  - Pleural effusion [Recovered/Resolved]
  - Scrotal irritation [Not Recovered/Not Resolved]
  - Chest pain [Recovered/Resolved]
  - Dyspnoea [Recovered/Resolved]
  - Haemoptysis [Recovered/Resolved]
  - Anaemia [Recovered/Resolved]
  - Pyrexia [Recovered/Resolved]
  - Sputum increased [Recovered/Resolved]
  - Blood bilirubin increased [Recovered/Resolved]
  - Platelet count decreased [Recovered/Resolved]
  - Dizziness [Recovered/Resolved]
  - Mouth ulceration [Recovered/Resolved]
  - Hypokalaemia [Recovered/Resolved]
  - Atypical pneumonia [Not Recovered/Not Resolved]
  - Hypoacusis [Recovered/Resolved]
  - Epistaxis [Recovered/Resolved]
  - Gait inability [Recovered/Resolved]
  - Blood pressure decreased [Recovered/Resolved]
  - Chills [Recovered/Resolved]

NARRATIVE: CASE EVENT DATE: 20110228
